FAERS Safety Report 6732388-0 (Version None)
Quarter: 2010Q2

REPORT INFORMATION
  Report Type: 
  Country: None (occurrence: None)
  Receive Date: 20100519
  Receipt Date: 20100512
  Transmission Date: 20101027
  Serious: Yes (Hospitalization)
  Sender: FDA-Public Use
  Company Number: US-ROCHE-702003

PATIENT
  Sex: Female
  Weight: 59.4 kg

DRUGS (4)
  1. ACTEMRA [Suspect]
     Indication: RHEUMATOID ARTHRITIS
     Dosage: FORM: INFUSION. RECEIVED ONE DOSE ONLY.
     Route: 042
     Dates: start: 20100315, end: 20100315
  2. METHOTREXATE [Concomitant]
     Dosage: ONCE
  3. HCQS [Concomitant]
  4. AZA [Concomitant]

REACTIONS (4)
  - CHRONIC OBSTRUCTIVE PULMONARY DISEASE [None]
  - HEPATIC FUNCTION ABNORMAL [None]
  - PNEUMONIA [None]
  - RENAL IMPAIRMENT [None]
